FAERS Safety Report 8619899-8 (Version None)
Quarter: 2012Q3

REPORT INFORMATION
  Report Type: 
  Country: None (occurrence: None)
  Receive Date: 20120824
  Receipt Date: 20120820
  Transmission Date: 20120928
  Serious: Yes (Hospitalization)
  Sender: FDA-Public Use
  Company Number: CZ-UCBSA-063319

PATIENT
  Age: 35 Year
  Sex: Female
  Weight: 54.8 kg

DRUGS (3)
  1. CERTOLIZUMAB PEGOL [Suspect]
     Indication: PSORIATIC ARTHROPATHY
     Route: 058
     Dates: start: 20110323, end: 20120725
  2. IBRUPROFEN [Concomitant]
     Indication: PSORIATIC ARTHROPATHY
     Dosage: 400 MG PRN
     Route: 048
     Dates: start: 20100101
  3. ZOLOFT [Concomitant]
     Indication: DEPRESSED MOOD
     Route: 048
     Dates: start: 20100101

REACTIONS (1)
  - PYODERMA [None]
